FAERS Safety Report 4715851-3 (Version None)
Quarter: 2005Q3

REPORT INFORMATION
  Report Type: 
  Country: None (occurrence: None)
  Receive Date: 20050718
  Receipt Date: 20030312
  Transmission Date: 20060218
  Serious: Yes (Other)
  Sender: FDA-Public Use
  Company Number: JP-ROCHE-333710

PATIENT
  Age: 3 Year
  Sex: Female
  Weight: 14 kg

DRUGS (3)
  1. TAMIFLU [Suspect]
     Route: 048
     Dates: start: 20030310, end: 20030310
  2. MUCOSOLVAN [Concomitant]
     Route: 048
     Dates: start: 20030310, end: 20030310
  3. PEMILASTON [Concomitant]
     Route: 048
     Dates: start: 20030310, end: 20030310

REACTIONS (4)
  - ANAPHYLACTOID REACTION [None]
  - INCORRECT DOSE ADMINISTERED [None]
  - PRURITUS [None]
  - RASH [None]
